FAERS Safety Report 23882932 (Version 2)
Quarter: 2024Q2

REPORT INFORMATION
  Report Type: Report from Study
  Country: CN (occurrence: CN)
  Receive Date: 20240522
  Receipt Date: 20240603
  Transmission Date: 20240716
  Serious: Yes (Other)
  Sender: FDA-Public Use
  Company Number: CN-002147023-NVSC2024CN105960

PATIENT
  Sex: Female

DRUGS (1)
  1. COSENTYX [Suspect]
     Active Substance: SECUKINUMAB
     Indication: Psoriasis
     Dosage: 2 INJECTIONS EVERY 2 MONTHS
     Route: 058
     Dates: start: 2023, end: 202405

REACTIONS (4)
  - Pulmonary tuberculosis [Unknown]
  - Cystic lung disease [Unknown]
  - Pulmonary mass [Unknown]
  - Off label use [Unknown]

NARRATIVE: CASE EVENT DATE: 20240501
